FAERS Safety Report 7912402-7 (Version None)
Quarter: 2011Q4

REPORT INFORMATION
  Report Type: 
  Country: None (occurrence: None)
  Receive Date: 20111114
  Receipt Date: 20111110
  Transmission Date: 20120403
  Serious: Yes (Hospitalization)
  Sender: FDA-Public Use
  Company Number: AT-ABBOTT-11P-009-0873164-00

PATIENT
  Age: 56 Year
  Sex: Female
  Weight: 50 kg

DRUGS (10)
  1. HUMIRA [Suspect]
     Indication: POLYARTHRITIS
     Dates: start: 20070101
  2. PREDNISOLONE [Concomitant]
     Indication: PRODUCT USED FOR UNKNOWN INDICATION
  3. LISINOPRIL [Concomitant]
     Indication: PRODUCT USED FOR UNKNOWN INDICATION
  4. BONIVA [Concomitant]
     Indication: PRODUCT USED FOR UNKNOWN INDICATION
     Dosage: LONG TERM THERAPY
     Dates: start: 20080101
  5. ARAVA [Suspect]
     Indication: POLYARTHRITIS
     Dates: start: 20070101
  6. DICLOFENAC SODIUM [Concomitant]
     Indication: PRODUCT USED FOR UNKNOWN INDICATION
  7. EZETIMIBE [Concomitant]
     Indication: PRODUCT USED FOR UNKNOWN INDICATION
     Dosage: LONG TERM THERAPY
     Dates: start: 20080101
  8. PANTOPRAZOLE SODIUM [Concomitant]
     Indication: PRODUCT USED FOR UNKNOWN INDICATION
  9. PLAVIX [Concomitant]
     Indication: PRODUCT USED FOR UNKNOWN INDICATION
  10. CONCOR [Concomitant]
     Indication: PRODUCT USED FOR UNKNOWN INDICATION

REACTIONS (1)
  - AUTOIMMUNE THYROIDITIS [None]
